FAERS Safety Report 8219230-6 (Version None)
Quarter: 2012Q1

REPORT INFORMATION
  Report Type: 
  Country: None (occurrence: None)
  Receive Date: 20120319
  Receipt Date: 20120308
  Transmission Date: 20120608
  Serious: Yes (Hospitalization)
  Sender: FDA-Public Use
  Company Number: US-JNJFOC-20110809628

PATIENT
  Sex: Male
  Weight: 93.9 kg

DRUGS (6)
  1. TRAMADOL HCL [Concomitant]
  2. REMICADE [Suspect]
     Indication: INFLAMMATORY BOWEL DISEASE
     Route: 042
     Dates: start: 20100510
  3. AMITRIPTYLINE HCL [Concomitant]
  4. OMEPRAZOLE [Concomitant]
  5. ADDERALL 5 [Concomitant]
  6. MULTI-VITAMINS [Concomitant]

REACTIONS (1)
  - CROHN'S DISEASE [None]
